FAERS Safety Report 14752445 (Version 3)
Quarter: 2018Q2

REPORT INFORMATION
  Report Type: Spontaneous
  Country: ES (occurrence: ES)
  Receive Date: 20180412
  Receipt Date: 20180605
  Transmission Date: 20180711
  Serious: Yes (Death, Hospitalization, Other)
  Sender: FDA-Public Use
  Company Number: ES-JNJFOC-20180412901

PATIENT
  Age: 86 Year
  Sex: Male
  Weight: 43.09 kg

DRUGS (11)
  1. SINTONAL [Concomitant]
     Indication: INSOMNIA
     Route: 065
     Dates: start: 201709
  2. SEGURIL [Concomitant]
     Active Substance: FUROSEMIDE
     Indication: OEDEMA
     Route: 065
     Dates: start: 201708
  3. NOLOTIL (METAMIZOLE MAGNESIUM) [Concomitant]
     Active Substance: METAMIZOLE MAGNESIUM
     Indication: ANALGESIC THERAPY
     Route: 048
     Dates: start: 201704
  4. ZYTIGA [Suspect]
     Active Substance: ABIRATERONE ACETATE
     Indication: PROSTATE CANCER METASTATIC
     Route: 048
     Dates: start: 20180312
  5. PREDNISONE. [Concomitant]
     Active Substance: PREDNISONE
     Indication: PROSTATE CANCER METASTATIC
     Route: 065
     Dates: start: 20180312
  6. PROLIA [Concomitant]
     Active Substance: DENOSUMAB
     Indication: PROPHYLAXIS
     Route: 065
     Dates: start: 201708
  7. BOREA [Concomitant]
     Active Substance: MEGESTROL ACETATE
     Indication: CACHEXIA
     Route: 065
  8. IDEOS UNIDIA [Concomitant]
     Active Substance: CALCIUM CARBONATE\CHOLECALCIFEROL
     Route: 048
     Dates: start: 201708
  9. ELIGARD [Concomitant]
     Active Substance: LEUPROLIDE ACETATE
     Indication: PROSTATE CANCER
     Route: 065
     Dates: start: 201605
  10. DUROGESIC [Concomitant]
     Active Substance: FENTANYL
     Indication: ANALGESIC THERAPY
     Route: 065
  11. ORFIDAL [Concomitant]
     Active Substance: LORAZEPAM
     Indication: INSOMNIA
     Route: 065
     Dates: start: 201708

REACTIONS (9)
  - Atrial fibrillation [Unknown]
  - Cardio-respiratory arrest [Fatal]
  - Disorientation [Unknown]
  - Dyspnoea [Unknown]
  - Hyponatraemia [Unknown]
  - Ascites [Unknown]
  - Oedema [Unknown]
  - Oedema peripheral [Unknown]
  - Rales [Unknown]

NARRATIVE: CASE EVENT DATE: 20180318
